FAERS Safety Report 14208933 (Version 1)
Quarter: 2017Q4

REPORT INFORMATION
  Report Type: Spontaneous
  Country: US (occurrence: US)
  Receive Date: 20171121
  Receipt Date: 20171121
  Transmission Date: 20180321
  Serious: No
  Sender: FDA-Public Use
  Company Number: US-JNJFOC-20171034494

PATIENT
  Age: 63 Year
  Sex: Female
  Weight: 81.65 kg

DRUGS (9)
  1. SYNTHROID [Concomitant]
     Active Substance: LEVOTHYROXINE SODIUM
     Indication: THYROID DISORDER
     Route: 048
  2. POTASSIUM [Concomitant]
     Active Substance: POTASSIUM
     Indication: NUTRITIONAL SUPPLEMENTATION
     Route: 048
     Dates: start: 2017
  3. XARELTO [Suspect]
     Active Substance: RIVAROXABAN
     Indication: CEREBROVASCULAR ACCIDENT PROPHYLAXIS
     Route: 048
     Dates: start: 2015
  4. DILTIAZEM. [Concomitant]
     Active Substance: DILTIAZEM
     Indication: ATRIAL FIBRILLATION
     Route: 048
     Dates: start: 2013
  5. XARELTO [Suspect]
     Active Substance: RIVAROXABAN
     Indication: ATRIAL FIBRILLATION
     Route: 048
     Dates: start: 2015
  6. TYLENOL [Concomitant]
     Active Substance: ACETAMINOPHEN
     Indication: PAIN
     Route: 048
  7. FUROSEMIDE. [Concomitant]
     Active Substance: FUROSEMIDE
     Indication: DIURETIC THERAPY
     Route: 048
     Dates: start: 2017
  8. COLCHICINE. [Concomitant]
     Active Substance: COLCHICINE
     Indication: PNEUMONITIS
     Route: 048
     Dates: start: 2013
  9. COLCHICINE. [Concomitant]
     Active Substance: COLCHICINE
     Indication: CARDITIS
     Route: 048
     Dates: start: 2013

REACTIONS (3)
  - Scar [Not Recovered/Not Resolved]
  - Pain [Not Recovered/Not Resolved]
  - Poor venous access [Not Recovered/Not Resolved]

NARRATIVE: CASE EVENT DATE: 201707
